FAERS Safety Report 9888027 (Version 3)
Quarter: 2014Q1

REPORT INFORMATION
  Report Type: Spontaneous
  Country: JP (occurrence: JP)
  Receive Date: 20140211
  Receipt Date: 20140305
  Transmission Date: 20141002
  Serious: Yes (Hospitalization, Other)
  Sender: FDA-Public Use
  Company Number: PHHY2014JP016156

PATIENT
  Age: 83 Year
  Sex: Male

DRUGS (10)
  1. EXELON PATCH [Suspect]
     Indication: DEMENTIA ALZHEIMER^S TYPE
     Dosage: 4.5 MG, DAILY
     Route: 062
     Dates: start: 20131109, end: 20131206
  2. EXELON PATCH [Suspect]
     Dosage: 9 MG, DAILY
     Route: 062
     Dates: start: 20131207, end: 20140103
  3. EXELON PATCH [Suspect]
     Dosage: 13.5 MG, DAILY
     Route: 062
     Dates: start: 20140104, end: 20140131
  4. EXELON PATCH [Suspect]
     Dosage: 18 MG, DAILY
     Route: 062
     Dates: start: 20140201
  5. NITRODERM TTS [Concomitant]
     Dosage: 25 MG, UNK
     Route: 062
  6. PLAVIX [Concomitant]
     Dosage: UNK UKN, UNK
     Route: 048
  7. AMLODIN [Concomitant]
     Dosage: UNK UKN, UNK
     Route: 048
  8. BLOPRESS [Concomitant]
     Dosage: UNK UKN, UNK
     Route: 048
  9. TAKEPRON [Concomitant]
     Dosage: UNK UKN, UNK
     Route: 048
  10. CRAVIT [Concomitant]
     Dosage: UNK UKN, UNK

REACTIONS (5)
  - Angina pectoris [Recovered/Resolved]
  - Acute respiratory failure [Recovered/Resolved]
  - Loss of consciousness [Recovered/Resolved]
  - Pneumonia [Recovered/Resolved]
  - Blood pressure systolic increased [Recovered/Resolved]
